FAERS Safety Report 14215824 (Version 1)
Quarter: 2017Q4

REPORT INFORMATION
  Report Type: Not Available
  Country: US (occurrence: US)
  Receive Date: 20171122
  Receipt Date: 20171122
  Transmission Date: 20180321
  Serious: No
  Sender: FDA-Public Use
  Company Number: US-MIDATECHPHARMA-2017-US-007717

PATIENT
  Sex: Female

DRUGS (1)
  1. ORAVIG [Suspect]
     Active Substance: MICONAZOLE

REACTIONS (2)
  - Lip swelling [Unknown]
  - Skin irritation [Unknown]
